FAERS Safety Report 5755021-3 (Version None)
Quarter: 2008Q2

REPORT INFORMATION
  Report Type: 
  Country: None (occurrence: None)
  Receive Date: 20080528
  Receipt Date: 20080528
  Transmission Date: 20081010
  Serious: No
  Sender: FDA-Public Use
  Company Number: None

PATIENT
  Age: 66 Year
  Sex: Male

DRUGS (1)
  1. DIATRIZOATE [Suspect]
     Indication: PNEUMONIA
     Dosage: 100 ML ONCE IV
     Route: 042
     Dates: start: 20080520, end: 20080520

REACTIONS (9)
  - BURNING SENSATION [None]
  - COUGH [None]
  - DISCOMFORT [None]
  - DYSPNOEA [None]
  - HOT FLUSH [None]
  - HYPERHIDROSIS [None]
  - RESPIRATORY DEPRESSION [None]
  - TREMOR [None]
  - WHEEZING [None]
